FAERS Safety Report 14145431 (Version 1)
Quarter: 2017Q4

REPORT INFORMATION
  Report Type: Spontaneous
  Country: US (occurrence: US)
  Receive Date: 20171030
  Receipt Date: 20171030
  Transmission Date: 20180321
  Serious: Yes (Other)
  Sender: FDA-Public Use
  Company Number: None

PATIENT
  Age: 44 Year
  Sex: Female
  Weight: 118.8 kg

DRUGS (8)
  1. VITAMIN E [Concomitant]
     Active Substance: .ALPHA.-TOCOPHEROL
  2. FISH OIL [Concomitant]
     Active Substance: FISH OIL
  3. ARMOUR THYROID [Concomitant]
     Active Substance: THYROID, PORCINE
  4. MULTIVITAMIN [Concomitant]
     Active Substance: VITAMINS
  5. PROBIOTIC [Concomitant]
     Active Substance: PROBIOTICS NOS
  6. HYDROCHLOROTHIAZIDE GENERIC FOR: MICROZIDE [Suspect]
     Active Substance: HYDROCHLOROTHIAZIDE
     Indication: HYPERTENSION
     Dosage: ?          QUANTITY:90 TABLET(S);?
     Route: 048
  7. VITAMIN D [Concomitant]
     Active Substance: CHOLECALCIFEROL
  8. GARLIC. [Concomitant]
     Active Substance: GARLIC

REACTIONS (18)
  - Eye irritation [None]
  - Ocular hyperaemia [None]
  - Tension [None]
  - Paraesthesia [None]
  - Muscular weakness [None]
  - Chest discomfort [None]
  - Dyspnoea [None]
  - Sleep apnoea syndrome [None]
  - Limb discomfort [None]
  - Hypersensitivity [None]
  - Headache [None]
  - Vision blurred [None]
  - Dysphagia [None]
  - Heart rate increased [None]
  - Dry eye [None]
  - Nausea [None]
  - Memory impairment [None]
  - Abdominal distension [None]

NARRATIVE: CASE EVENT DATE: 20171030
